FAERS Safety Report 9651534 (Version 2)
Quarter: 2013Q4

REPORT INFORMATION
  Report Type: Spontaneous
  Country: GB (occurrence: GB)
  Receive Date: 20131029
  Receipt Date: 20131116
  Transmission Date: 20140711
  Serious: Yes (Other)
  Sender: FDA-Public Use
  Company Number: GB-009507513-1310GBR010951

PATIENT
  Age: 22 Year
  Sex: Female
  Weight: 78.4 kg

DRUGS (3)
  1. NEXPLANON [Suspect]
     Indication: CONTRACEPTION
     Dosage: 68 MG
     Route: 058
     Dates: start: 20130909, end: 20131007
  2. LEVONELLE [Concomitant]
     Indication: CONTRACEPTION
     Dosage: 1500 MICROGRAM
     Route: 048
     Dates: start: 20130909, end: 20130909
  3. XYLOCAINE [Concomitant]
     Indication: ANAESTHESIA
     Dosage: 0.75 ML, UNK
     Route: 058
     Dates: start: 20130909, end: 20130909

REACTIONS (5)
  - Blister [Not Recovered/Not Resolved]
  - Skin warm [Not Recovered/Not Resolved]
  - Rash erythematous [Not Recovered/Not Resolved]
  - Implant site reaction [Not Recovered/Not Resolved]
  - Pruritus [Not Recovered/Not Resolved]
